FAERS Safety Report 7804512-X (Version None)
Quarter: 2011Q4

REPORT INFORMATION
  Report Type: 
  Country: None (occurrence: None)
  Receive Date: 20111010
  Receipt Date: 20110930
  Transmission Date: 20120403
  Serious: Yes (Other)
  Sender: FDA-Public Use
  Company Number: PHHY2011JP77366

PATIENT
  Age: 43 Year
  Sex: Female

DRUGS (1)
  1. ZOMETA [Suspect]
     Indication: METASTASES TO BONE
     Dosage: 4 MG, QMO
     Route: 041
     Dates: start: 20080101, end: 20081001

REACTIONS (15)
  - EXPOSED BONE IN JAW [None]
  - PERIODONTAL INFECTION [None]
  - OSTEOMYELITIS [None]
  - MOUTH ULCERATION [None]
  - OSTEONECROSIS OF JAW [None]
  - FISTULA [None]
  - GINGIVAL SWELLING [None]
  - PRIMARY SEQUESTRUM [None]
  - ERYTHEMA [None]
  - STOMATITIS [None]
  - TOOTHACHE [None]
  - GINGIVAL ABSCESS [None]
  - PAIN IN JAW [None]
  - HYPOAESTHESIA [None]
  - OSTEITIS [None]
